FAERS Safety Report 5624294-X (Version None)
Quarter: 2008Q1

REPORT INFORMATION
  Report Type: 
  Country: None (occurrence: None)
  Receive Date: 20080129
  Receipt Date: 20061130
  Transmission Date: 20080703
  Serious: Yes (Hospitalization)
  Sender: FDA-Public Use
  Company Number: WAES 0612USA00123

PATIENT
  Age: 61 Year
  Sex: Female

DRUGS (1)
  1. INVANZ [Suspect]
     Indication: DIVERTICULITIS
     Dosage: 1 GM/DAILY
     Dates: start: 20061123, end: 20061129

REACTIONS (2)
  - ALANINE AMINOTRANSFERASE INCREASED [None]
  - ASPARTATE AMINOTRANSFERASE INCREASED [None]
